FAERS Safety Report 10386817 (Version 3)
Quarter: 2014Q3

REPORT INFORMATION
  Report Type: Spontaneous
  Country: JP (occurrence: JP)
  Receive Date: 20140815
  Receipt Date: 20140828
  Transmission Date: 20150326
  Serious: Yes (Hospitalization)
  Sender: FDA-Public Use
  Company Number: JP-ASTELLAS-2014JP014245AA

PATIENT
  Age: 72 Year
  Sex: Male

DRUGS (1)
  1. XTANDI [Suspect]
     Active Substance: ENZALUTAMIDE
     Indication: PROSTATE CANCER
     Route: 048
     Dates: start: 20140625, end: 20140704

REACTIONS (1)
  - Drug eruption [Recovered/Resolved]

NARRATIVE: CASE EVENT DATE: 20140704
